FAERS Safety Report 6073304-7 (Version None)
Quarter: 2009Q1

REPORT INFORMATION
  Report Type: 
  Country: None (occurrence: None)
  Receive Date: 20090211
  Receipt Date: 20090130
  Transmission Date: 20090719
  Serious: Yes (Hospitalization)
  Sender: FDA-Public Use
  Company Number: PHHY2009ES03484

PATIENT
  Age: 76 Year
  Sex: Female

DRUGS (6)
  1. SINTROM [Interacting]
     Indication: ISCHAEMIC HEART DISEASE PROPHYLAXIS
     Dosage: UNK
     Route: 048
     Dates: start: 20040101
  2. TROMALYT [Interacting]
     Indication: ISCHAEMIC HEART DISEASE PROPHYLAXIS
     Dosage: 150 MG DAILY
     Route: 048
     Dates: start: 20040101, end: 20081217
  3. NITRODERM [Suspect]
     Indication: HYPERTENSION
     Dosage: 50 MG
     Route: 062
     Dates: end: 20081220
  4. DIOVAN [Suspect]
     Indication: HYPERTENSION
     Dosage: 160 MG DAILY
     Route: 048
  5. ACFOL [Concomitant]
     Dosage: 5 MG DAILY
     Route: 048
     Dates: end: 20081220
  6. PANTOK [Concomitant]
     Dosage: 40 MG DAILY
     Route: 048
     Dates: end: 20081220

REACTIONS (5)
  - DRUG INTERACTION [None]
  - DUODENAL ULCER [None]
  - GASTROINTESTINAL HAEMORRHAGE [None]
  - HAEMATOCRIT DECREASED [None]
  - HAEMOGLOBIN DECREASED [None]
